FAERS Safety Report 5971180-1 (Version None)
Quarter: 2008Q4

REPORT INFORMATION
  Report Type: 
  Country: None (occurrence: None)
  Receive Date: 20081128
  Receipt Date: 20081126
  Transmission Date: 20090506
  Serious: Yes (Other)
  Sender: FDA-Public Use
  Company Number: US-JNJFOC-20081106370

PATIENT
  Age: 41 Year
  Sex: Female

DRUGS (3)
  1. LEVAQUIN [Suspect]
     Indication: ABDOMINAL PAIN
     Route: 065
  2. LEVAQUIN [Suspect]
     Indication: BRONCHITIS
     Route: 065
  3. LEVAQUIN [Suspect]
     Indication: COUGH
     Route: 065

REACTIONS (1)
  - FACIAL PALSY [None]
